FAERS Safety Report 6399650-5 (Version None)
Quarter: 2009Q4

REPORT INFORMATION
  Report Type: 
  Country: None (occurrence: None)
  Receive Date: 20091014
  Receipt Date: 20091002
  Transmission Date: 20100525
  Serious: Yes (Hospitalization, Disabling, Other)
  Sender: FDA-Public Use
  Company Number: US-ROCHE-387326

PATIENT
  Sex: Male
  Weight: 61.2 kg

DRUGS (13)
  1. ACCUTANE [Suspect]
     Dosage: THE PATIENT WAS TAKING ONE CAP BY MOUTH EVERY OTHER DAY ALTERNATING WITH 2 CAPS EVERY OTHER DAY
     Route: 048
     Dates: start: 20010828, end: 20011201
  2. AMOXICILLIN [Concomitant]
     Route: 048
     Dates: start: 20010828, end: 20011107
  3. PREDNISOLONE [Concomitant]
     Dosage: 28AUG01 TO 11SEP01 40MGQAM 30MG QPM
     Route: 048
     Dates: start: 20010828, end: 20010911
  4. PREDNISOLONE [Concomitant]
     Dosage: 11SEP01 TO UNK: 30MG QAM AND 20MG QPM
     Route: 048
     Dates: start: 20010911
  5. PREDNISOLONE [Concomitant]
     Dosage: 10 OCT 2001 TO 07NOV2001: 20MG QAM
     Route: 048
     Dates: start: 20011010, end: 20011107
  6. PREDNISOLONE [Concomitant]
     Dosage: 17-MAR-2003 - UNK: 55MG QD
     Route: 048
     Dates: start: 20030317
  7. PREDNISOLONE [Concomitant]
     Dosage: 31-MAR-2003 - 14MAY2003: 40MG QD
     Route: 048
     Dates: start: 20030331, end: 20030514
  8. ADVIL [Concomitant]
     Indication: RHINITIS
     Route: 048
     Dates: start: 20010911
  9. ASACOL [Concomitant]
  10. BACTRIM DS [Concomitant]
     Dates: start: 20011107
  11. CLARITIN [Concomitant]
     Indication: RHINITIS
     Dates: start: 20010911
  12. ALEVE [Concomitant]
     Indication: HEADACHE
     Dates: start: 20011010
  13. AMOXIDAL RESPIRATORIO [Concomitant]

REACTIONS (30)
  - ACOUSTIC NEUROMA [None]
  - ANAL ABSCESS [None]
  - ANAL FISTULA [None]
  - ANXIETY [None]
  - CHEST PAIN [None]
  - CHOLELITHIASIS [None]
  - COLITIS [None]
  - COLITIS ULCERATIVE [None]
  - CROHN'S DISEASE [None]
  - DEPRESSION [None]
  - DYSPNOEA [None]
  - GASTROINTESTINAL DISORDER [None]
  - GRANULOMA [None]
  - HEADACHE [None]
  - HEPATIC ENZYME INCREASED [None]
  - HERNIA [None]
  - HYPERPLASIA [None]
  - HYPERSENSITIVITY [None]
  - INFLAMMATORY BOWEL DISEASE [None]
  - INTESTINAL HAEMORRHAGE [None]
  - IRRITABLE BOWEL SYNDROME [None]
  - JOINT SWELLING [None]
  - LIP DRY [None]
  - MENINGIOMA [None]
  - MIGRAINE [None]
  - MULTI-ORGAN DISORDER [None]
  - POLYP [None]
  - PYODERMA GANGRENOSUM [None]
  - RECTAL HAEMORRHAGE [None]
  - SCAR [None]
